FAERS Safety Report 4304758-1 (Version None)
Quarter: 2004Q1

REPORT INFORMATION
  Report Type: 
  Country: None (occurrence: None)
  Receive Date: 20040226
  Receipt Date: 20031202
  Transmission Date: 20041129
  Serious: Yes (Other)
  Sender: FDA-Public Use
  Company Number: US-GLAXOSMITHKLINE-A0441658A

PATIENT
  Age: 34 Year
  Sex: Female

DRUGS (2)
  1. WELLBUTRIN [Suspect]
     Indication: DEPRESSION
     Dosage: 300MG PER DAY
     Route: 048
  2. THYROID MEDICATION [Concomitant]

REACTIONS (3)
  - AMNESIA [None]
  - HALLUCINATION [None]
  - ROAD TRAFFIC ACCIDENT [None]
